FAERS Safety Report 7623243-2 (Version None)
Quarter: 2011Q3

REPORT INFORMATION
  Report Type: 
  Country: None (occurrence: None)
  Receive Date: 20110720
  Receipt Date: 20110708
  Transmission Date: 20111222
  Serious: Yes (Other)
  Sender: FDA-Public Use
  Company Number: IT-JNJFOC-20110704266

PATIENT
  Age: 10 Year
  Sex: Male

DRUGS (3)
  1. REMICADE [Suspect]
     Indication: COLITIS ULCERATIVE
     Route: 042
     Dates: start: 20110223, end: 20110310
  2. SUPRADYN [Concomitant]
     Route: 065
  3. TPN [Concomitant]
     Route: 065

REACTIONS (3)
  - ERYTHEMA [None]
  - DYSPNOEA [None]
  - HYPERHIDROSIS [None]
